FAERS Safety Report 13233302 (Version 1)
Quarter: 2017Q1

REPORT INFORMATION
  Report Type: Spontaneous
  Country: GB (occurrence: GB)
  Receive Date: 20170215
  Receipt Date: 20170215
  Transmission Date: 20170428
  Serious: Yes (Hospitalization)
  Sender: FDA-Public Use
  Company Number: GB-ACCORD-048108

PATIENT
  Age: 57 Year
  Sex: Female

DRUGS (7)
  1. RIZATRIPTAN. [Concomitant]
     Active Substance: RIZATRIPTAN
  2. IRINOTECAN [Suspect]
     Active Substance: IRINOTECAN
     Indication: COLON CANCER
     Dosage: FOLFIRI
     Route: 042
     Dates: start: 20170101, end: 20170116
  3. SIMVASTATIN. [Concomitant]
     Active Substance: SIMVASTATIN
  4. FLUOROURACIL. [Suspect]
     Active Substance: FLUOROURACIL
     Indication: COLON CANCER
     Dosage: FOLFIRI
     Route: 042
     Dates: start: 20170101, end: 20170116
  5. OMEPRAZOLE. [Concomitant]
     Active Substance: OMEPRAZOLE
  6. FOLINIC ACID [Concomitant]
     Active Substance: LEUCOVORIN
     Indication: COLON CANCER
     Dates: start: 20170101, end: 20170116
  7. ATENOLOL/ATENOLOL HYDROCHLORIDE [Concomitant]

REACTIONS (2)
  - Neutropenic sepsis [Not Recovered/Not Resolved]
  - Cerebrovascular accident [Unknown]

NARRATIVE: CASE EVENT DATE: 20170119
